FAERS Safety Report 5708502-2 (Version None)
Quarter: 2008Q2

REPORT INFORMATION
  Report Type: 
  Country: None (occurrence: None)
  Receive Date: 20080417
  Receipt Date: 20070302
  Transmission Date: 20081010
  Serious: No
  Sender: FDA-Public Use
  Company Number: US-BRISTOL-MYERS SQUIBB COMPANY-13699517

PATIENT
  Age: 72 Year
  Sex: Female
  Weight: 59 kg

DRUGS (4)
  1. CARBOPLATIN [Suspect]
     Indication: UTERINE CANCER
     Dates: start: 20070201
  2. TAXOTERE [Suspect]
     Indication: UTERINE CANCER
     Dates: start: 20070201
  3. MICARDIS [Concomitant]
  4. MULTI-VITAMIN [Concomitant]

REACTIONS (4)
  - ALOPECIA [None]
  - CHEST DISCOMFORT [None]
  - FLUSHING [None]
  - PARAESTHESIA [None]
